FAERS Safety Report 5920867-5 (Version None)
Quarter: 2008Q4

REPORT INFORMATION
  Report Type: 
  Country: None (occurrence: None)
  Receive Date: 20081015
  Receipt Date: 20081015
  Transmission Date: 20090506
  Serious: Yes (Life-Threatening, Hospitalization, Disabling)
  Sender: FDA-Public Use
  Company Number: None

PATIENT
  Sex: Male
  Weight: 14.5151 kg

DRUGS (2)
  1. LAMICTAL [Suspect]
     Indication: CONVULSION
     Dosage: 2  5MG TABLET 2X DAY PO
     Route: 048
     Dates: start: 20080925, end: 20081002
  2. VENOGLOBULIN [Concomitant]

REACTIONS (3)
  - HYPOPHAGIA [None]
  - STEVENS-JOHNSON SYNDROME [None]
  - VIRAL INFECTION [None]
